FAERS Safety Report 8604277 (Version 3)
Quarter: 2014Q1

REPORT INFORMATION
  Report Type: Spontaneous
  Country: US (occurrence: US)
  Receive Date: 20120608
  Receipt Date: 20140110
  Transmission Date: 20141002
  Serious: Yes (Other)
  Sender: FDA-Public Use
  Company Number: US-BAYER-2012-056056

PATIENT
  Age: 31 Year
  Sex: Female
  Weight: 61.22 kg

DRUGS (9)
  1. YAZ [Suspect]
     Indication: CONTRACEPTION
     Dosage: UNK
     Dates: start: 200603
  2. YAZ [Suspect]
     Indication: PREMENSTRUAL SYNDROME
     Dosage: UNK
     Dates: start: 200908, end: 2010
  3. YAZ [Suspect]
     Indication: ACNE
  4. YASMIN [Suspect]
     Indication: CONTRACEPTION
     Dosage: UNK
     Dates: start: 200603
  5. YASMIN [Suspect]
     Indication: PREMENSTRUAL SYNDROME
     Dosage: UNK
     Dates: start: 200908, end: 2010
  6. YASMIN [Suspect]
     Indication: ACNE
  7. IBUPROFEN [Concomitant]
     Indication: SINUS HEADACHE
     Dosage: 800 MG, UNK
     Route: 048
     Dates: start: 20100808
  8. DOCUSATE [Concomitant]
     Dosage: 100 MG, UNK
     Route: 048
     Dates: start: 20100808
  9. CIPROFLOXACIN HYDROCHLORIDE [Concomitant]
     Dosage: 500 MG, UNK
     Route: 048
     Dates: start: 20100911

REACTIONS (9)
  - Cholecystectomy [None]
  - Cholecystitis chronic [None]
  - Injury [None]
  - Pain [None]
  - Emotional distress [None]
  - Anxiety [None]
  - Psychological trauma [None]
  - Irritable bowel syndrome [None]
  - Mental disorder [None]
